FAERS Safety Report 6415493-8 (Version None)
Quarter: 2009Q4

REPORT INFORMATION
  Report Type: 
  Country: None (occurrence: None)
  Receive Date: 20091027
  Receipt Date: 20091019
  Transmission Date: 20100525
  Serious: Yes (Hospitalization, Other)
  Sender: FDA-Public Use
  Company Number: DK-JNJFOC-20091005502

PATIENT
  Sex: Female
  Weight: 56 kg

DRUGS (1)
  1. CILEST [Suspect]
     Indication: CONTRACEPTION
     Route: 048

REACTIONS (5)
  - ARTHRALGIA [None]
  - ERYTHEMA NODOSUM [None]
  - INFLUENZA [None]
  - JOINT SWELLING [None]
  - NEPHROLITHIASIS [None]
